FAERS Safety Report 9639464 (Version 1)
Quarter: 2013Q4

REPORT INFORMATION
  Report Type: Spontaneous
  Country: US (occurrence: US)
  Receive Date: 20131023
  Receipt Date: 20131023
  Transmission Date: 20140711
  Serious: Yes (Other)
  Sender: FDA-Public Use
  Company Number: US-AMGEN-USASP2013073394

PATIENT
  Age: 67 Year
  Sex: Female

DRUGS (5)
  1. PROLIA [Suspect]
     Indication: OSTEOPOROSIS POSTMENOPAUSAL
     Dosage: UNK
     Route: 065
     Dates: start: 20110519
  2. PROLIA [Suspect]
     Dosage: UNK
     Route: 065
  3. PROLIA [Suspect]
     Dosage: UNK
     Route: 065
  4. PROLIA [Suspect]
     Dosage: UNK
     Route: 065
  5. PROLIA [Suspect]
     Dosage: UNK
     Route: 065

REACTIONS (1)
  - Osteonecrosis of jaw [Unknown]
